FAERS Safety Report 4657350-3 (Version None)
Quarter: 2005Q2

REPORT INFORMATION
  Report Type: 
  Country: None (occurrence: None)
  Receive Date: 20050411
  Receipt Date: 20020605
  Transmission Date: 20051028
  Serious: Yes (Other)
  Sender: FDA-Public Use
  Company Number: 5052

PATIENT
  Age: 16 Year
  Sex: Female

DRUGS (4)
  1. VINCRISTINE [Suspect]
     Indication: EWING'S SARCOMA
     Dosage: 15 MG/M2 WEEKLY
  2. CYCLOPHOSPHAMIDE [Concomitant]
  3. DACTINOMYCIN [Concomitant]
  4. ADRIAMYCIN PFS [Concomitant]

REACTIONS (1)
  - NEUROTOXICITY [None]
